FAERS Safety Report 6164625-8 (Version None)
Quarter: 2009Q2

REPORT INFORMATION
  Report Type: 
  Country: None (occurrence: None)
  Receive Date: 20090421
  Receipt Date: 20090406
  Transmission Date: 20091009
  Serious: Yes (Other)
  Sender: FDA-Public Use
  Company Number: 2009S1006019

PATIENT
  Age: 58 Year
  Sex: Female

DRUGS (5)
  1. ROPINIROLE [Suspect]
     Indication: RESTLESS LEGS SYNDROME
     Dosage: 2 MG;DAILY
  2. CABERGOLINE [Suspect]
     Indication: RESTLESS LEGS SYNDROME
  3. OXAZEPAM [Concomitant]
  4. BENSERAZIDE HYDROCHLORIDE W/ LEV0DOPA [Concomitant]
  5. GABAPENTIN [Concomitant]

REACTIONS (4)
  - DERMATILLOMANIA [None]
  - MOVEMENT DISORDER [None]
  - OBSESSIVE-COMPULSIVE DISORDER [None]
  - TRICHOTILLOMANIA [None]
